FAERS Safety Report 6734726-1 (Version None)
Quarter: 2010Q2

REPORT INFORMATION
  Report Type: 
  Country: None (occurrence: None)
  Receive Date: 20100518
  Receipt Date: 20100518
  Transmission Date: 20101027
  Serious: No
  Sender: FDA-Public Use
  Company Number: None

PATIENT
  Age: 56 Year
  Sex: Male
  Weight: 113.3993 kg

DRUGS (2)
  1. ZICAM NASAL SWABS [Suspect]
     Indication: NASOPHARYNGITIS
     Dates: start: 20100315, end: 20100402
  2. ZICAM NASAL GEL [Suspect]
     Dates: start: 20100315, end: 20100402

REACTIONS (2)
  - ANOSMIA [None]
  - HYPOGEUSIA [None]
